FAERS Safety Report 6804482-7 (Version None)
Quarter: 2010Q2

REPORT INFORMATION
  Report Type: 
  Country: None (occurrence: None)
  Receive Date: 20100628
  Receipt Date: 20070321
  Transmission Date: 20101027
  Serious: No
  Sender: FDA-Public Use
  Company Number: US-PFIZER INC-2007022956

PATIENT
  Sex: Male
  Weight: 58.97 kg

DRUGS (2)
  1. GEODON [Suspect]
     Indication: DEPRESSION
     Dates: start: 20050101
  2. PROZAC [Concomitant]

REACTIONS (4)
  - ANXIETY [None]
  - FEELING HOT [None]
  - HYPERHIDROSIS [None]
  - WITHDRAWAL SYNDROME [None]
